FAERS Safety Report 7119698-2 (Version None)
Quarter: 2010Q4

REPORT INFORMATION
  Report Type: 
  Country: None (occurrence: None)
  Receive Date: 20101123
  Receipt Date: 20101115
  Transmission Date: 20110411
  Serious: Yes (Hospitalization, Other)
  Sender: FDA-Public Use
  Company Number: US-ELI_LILLY_AND_COMPANY-US201011004391

PATIENT
  Sex: Female

DRUGS (1)
  1. HUMALOG MIX 75/25 [Suspect]

REACTIONS (4)
  - HOSPITALISATION [None]
  - MALAISE [None]
  - NEOPLASM MALIGNANT [None]
  - VISUAL ACUITY REDUCED [None]
